FAERS Safety Report 19324919 (Version 1)
Quarter: 2021Q2

REPORT INFORMATION
  Report Type: Other
  Country: US (occurrence: US)
  Receive Date: 20210528
  Receipt Date: 20210528
  Transmission Date: 20210717
  Serious: Yes (Other)
  Sender: FDA-Public Use
  Company Number: US-CHEMI SPA-2112082

PATIENT
  Age: 17 Month
  Sex: Female

DRUGS (6)
  1. GEMTUZUMAB OZOGAMICIN [Concomitant]
     Active Substance: GEMTUZUMAB OZOGAMICIN
  2. FLUDARABINE [Concomitant]
     Active Substance: FLUDARABINE PHOSPHATE
  3. DECITABINE. [Suspect]
     Active Substance: DECITABINE
     Indication: ACUTE MEGAKARYOCYTIC LEUKAEMIA
  4. CYTARABINE. [Concomitant]
     Active Substance: CYTARABINE
  5. VORINOSTAT [Concomitant]
     Active Substance: VORINOSTAT
  6. IDARUBICIN HYDROCHLORIDE. [Concomitant]
     Active Substance: IDARUBICIN HYDROCHLORIDE

REACTIONS (4)
  - Drug ineffective [Unknown]
  - Gene mutation [Unknown]
  - Off label use [Unknown]
  - Product use in unapproved indication [Unknown]
